FAERS Safety Report 8370351-7 (Version None)
Quarter: 2012Q2

REPORT INFORMATION
  Report Type: 
  Country: None (occurrence: None)
  Receive Date: 20120518
  Receipt Date: 20120210
  Transmission Date: 20120825
  Serious: Yes (Hospitalization)
  Sender: FDA-Public Use
  Company Number: US-ASTRAZENECA-2012SE09134

PATIENT
  Age: 39 Year
  Sex: Male

DRUGS (3)
  1. PEPCID AC [Concomitant]
  2. STEROIDS [Concomitant]
  3. PRILOSEC OTC [Suspect]
     Dosage: TWO TIMES DAILY AND THEN ONCE.
     Route: 048
     Dates: start: 20120120, end: 20120201

REACTIONS (1)
  - PLATELET COUNT DECREASED [None]
